FAERS Safety Report 10923989 (Version 1)
Quarter: 2015Q1

REPORT INFORMATION
  Report Type: Spontaneous
  Country: US (occurrence: None)
  Receive Date: 20150316
  Receipt Date: 20150316
  Transmission Date: 20150721
  Serious: Yes (Death, Hospitalization)
  Sender: FDA-Public Use
  Company Number: None

PATIENT
  Age: 58 Year
  Sex: Male
  Weight: 71 kg

DRUGS (2)
  1. IDARUBICIN [Suspect]
     Active Substance: IDARUBICIN
  2. CYTARABINE. [Suspect]
     Active Substance: CYTARABINE

REACTIONS (3)
  - Respiratory distress [None]
  - Respiratory failure [None]
  - Sepsis [None]

NARRATIVE: CASE EVENT DATE: 20150307
